FAERS Safety Report 8234576-3 (Version None)
Quarter: 2012Q1

REPORT INFORMATION
  Report Type: 
  Country: None (occurrence: None)
  Receive Date: 20120321
  Receipt Date: 20120307
  Transmission Date: 20120608
  Serious: Yes (Death, Life-Threatening, Hospitalization, Disabling, Other)
  Sender: FDA-Public Use
  Company Number: 2008AL010867

PATIENT
  Age: 58 Year
  Sex: Male
  Weight: 93.441 kg

DRUGS (50)
  1. LISINOPRIL [Concomitant]
  2. GLIPIZIDE [Concomitant]
  3. FLOMAX [Concomitant]
  4. LASIX [Concomitant]
  5. ISOSORBIDE MONONITRATE [Concomitant]
  6. TERAZOSIN HCL [Concomitant]
  7. COZAAR [Concomitant]
  8. ISOSORBIDE DINITRATE [Concomitant]
  9. NITROGLYCERIN [Concomitant]
  10. ASPIRIN [Concomitant]
  11. WARFARIN SODIUM [Concomitant]
  12. ANTIBIOTIC THERAPY [Concomitant]
  13. DOXYCYCLINE [Concomitant]
  14. DIGOXIN [Suspect]
     Dosage: 0.25 MG;BID;PO
     Route: 048
     Dates: start: 19990501, end: 20090504
  15. JANTOVEN [Concomitant]
  16. ZOCOR [Concomitant]
  17. CIPROFLOXACIN [Concomitant]
  18. ZESTRIL [Concomitant]
  19. GLUCOTROL [Concomitant]
  20. ISOSORBIDE DINITRATE [Concomitant]
  21. AUGMENTIN [Concomitant]
  22. CARVEDILOL [Concomitant]
  23. DITROPAN [Concomitant]
  24. LOVASTATIN [Concomitant]
  25. NITROFURANTOIN [Concomitant]
  26. STRESS TABS WITH ZINC [Concomitant]
  27. WELLBUTRIN [Concomitant]
  28. FLOMAX [Concomitant]
  29. LISINOPRIL [Concomitant]
  30. ALDACTONE [Concomitant]
  31. PERCOCET [Concomitant]
  32. SIMVASTATIN [Concomitant]
  33. LASIX [Concomitant]
  34. COREG [Concomitant]
  35. COUMADIN [Concomitant]
  36. ALDACTONE [Concomitant]
  37. NITROGLYCERIN [Concomitant]
  38. KEFLEX [Concomitant]
  39. NITROGLYCERIN [Concomitant]
  40. SPIRONOLACTONE [Concomitant]
  41. TERAZOSIN HCL [Concomitant]
  42. HEPARIN [Concomitant]
  43. TYLENOL W/ CODEINE NO. 3 [Concomitant]
  44. ROCEPHIN [Concomitant]
  45. NITROGLYCERIN [Concomitant]
  46. ANTIBIOTIC THERAPY [Concomitant]
  47. BUPROPION HCL [Concomitant]
  48. ZANTAC [Concomitant]
  49. KUTRASE [Concomitant]
  50. COZAAR [Concomitant]

REACTIONS (85)
  - MULTIPLE INJURIES [None]
  - DYSPNOEA [None]
  - HYDROCELE [None]
  - ORTHOPNOEA [None]
  - DYSPNOEA PAROXYSMAL NOCTURNAL [None]
  - PALPITATIONS [None]
  - CARDIAC FLUTTER [None]
  - LEFT ATRIAL DILATATION [None]
  - ELECTROCARDIOGRAM T WAVE ABNORMAL [None]
  - BLOOD GLUCOSE INCREASED [None]
  - MYOCARDIAL ISCHAEMIA [None]
  - CARDIAC DISORDER [None]
  - PAIN [None]
  - HYPOAESTHESIA [None]
  - EPIDIDYMITIS [None]
  - ORGANIC ERECTILE DYSFUNCTION [None]
  - TOBACCO USER [None]
  - ANGINA PECTORIS [None]
  - MUSCULOSKELETAL PAIN [None]
  - PAIN IN EXTREMITY [None]
  - HYPERLIPIDAEMIA [None]
  - ILEUS [None]
  - AORTIC VALVE SCLEROSIS [None]
  - LEFT VENTRICULAR HYPERTROPHY [None]
  - ANXIETY [None]
  - URINARY TRACT OBSTRUCTION [None]
  - FLATULENCE [None]
  - CATARACT NUCLEAR [None]
  - RETINOPATHY [None]
  - TRICUSPID VALVE INCOMPETENCE [None]
  - PERICARDIAL EFFUSION [None]
  - VENTRICULAR EXTRASYSTOLES [None]
  - ELECTROCARDIOGRAM ST-T CHANGE [None]
  - CARDIAC FAILURE CONGESTIVE [None]
  - DILATATION VENTRICULAR [None]
  - ABDOMINAL PAIN [None]
  - URINARY HESITATION [None]
  - BACK PAIN [None]
  - TREATMENT NONCOMPLIANCE [None]
  - MYOPATHY [None]
  - IMPAIRED WORK ABILITY [None]
  - PULMONARY VALVE INCOMPETENCE [None]
  - QRS AXIS ABNORMAL [None]
  - WEIGHT INCREASED [None]
  - CONGESTIVE CARDIOMYOPATHY [None]
  - CHEST DISCOMFORT [None]
  - DYSPNOEA EXERTIONAL [None]
  - ELECTROCARDIOGRAM REPOLARISATION ABNORMALITY [None]
  - LEFT VENTRICULAR END-DIASTOLIC PRESSURE INCREASED [None]
  - CORONARY ARTERY STENOSIS [None]
  - PATENT DUCTUS ARTERIOSUS [None]
  - ECONOMIC PROBLEM [None]
  - FATIGUE [None]
  - VENTRICULAR TACHYCARDIA [None]
  - CONDUCTION DISORDER [None]
  - DYSLIPIDAEMIA [None]
  - BENIGN PROSTATIC HYPERPLASIA [None]
  - WEIGHT DECREASED [None]
  - HYPERHIDROSIS [None]
  - PURULENCE [None]
  - ATRIAL FIBRILLATION [None]
  - CHEST PAIN [None]
  - PARAESTHESIA [None]
  - ELECTROCARDIOGRAM T WAVE INVERSION [None]
  - MYOCARDIAL INFARCTION [None]
  - PROSTATE CANCER [None]
  - PROSTATITIS [None]
  - DIABETIC FOOT [None]
  - NAUSEA [None]
  - NOCTURIA [None]
  - MITRAL VALVE INCOMPETENCE [None]
  - RIGHT ATRIAL DILATATION [None]
  - ELECTROCARDIOGRAM QRS COMPLEX PROLONGED [None]
  - ELECTROCARDIOGRAM ST SEGMENT ELEVATION [None]
  - TROPONIN INCREASED [None]
  - URINARY TRACT DISORDER [None]
  - ORCHITIS [None]
  - PELVIC PAIN [None]
  - DECREASED APPETITE [None]
  - URINARY INCONTINENCE [None]
  - COUGH [None]
  - CARDIOMEGALY [None]
  - LUNG NEOPLASM [None]
  - SINUS ARRHYTHMIA [None]
  - ELECTROCARDIOGRAM QT PROLONGED [None]
